FAERS Safety Report 19416498 (Version 6)
Quarter: 2021Q4

REPORT INFORMATION
  Report Type: Report from Study
  Country: FR (occurrence: FR)
  Receive Date: 20210614
  Receipt Date: 20211027
  Transmission Date: 20220303
  Serious: Yes (Hospitalization, Other)
  Sender: FDA-Public Use
  Company Number: FR-BRISTOL-MYERS SQUIBB COMPANY-BMS-2021-052101

PATIENT
  Age: 68 Year
  Sex: Female
  Weight: 90 kg

DRUGS (22)
  1. NIVOLUMAB [Suspect]
     Active Substance: NIVOLUMAB
     Indication: Renal cell carcinoma
     Dosage: 107 MILLILITER
     Route: 042
     Dates: start: 20210303
  2. IPILIMUMAB [Suspect]
     Active Substance: IPILIMUMAB
     Indication: Renal cell carcinoma
     Dosage: 55 MILLILITER
     Route: 042
     Dates: start: 20210303
  3. RACECADOTRIL [Concomitant]
     Active Substance: RACECADOTRIL
     Indication: Diarrhoea
     Dosage: 300 MILLIGRAM
     Route: 048
     Dates: start: 20210403
  4. BISOPROLOL [Concomitant]
     Active Substance: BISOPROLOL
     Indication: Product used for unknown indication
     Dosage: UNK
     Route: 048
     Dates: end: 20210512
  5. BISOPROLOL [Concomitant]
     Active Substance: BISOPROLOL
     Dosage: 2.5 MILLIGRAM
     Route: 048
     Dates: start: 20210512, end: 20210515
  6. BISOPROLOL [Concomitant]
     Active Substance: BISOPROLOL
     Dosage: 1.25 MILLIGRAM
     Route: 048
     Dates: start: 20210516
  7. SMECTA [Concomitant]
     Active Substance: MONTMORILLONITE
     Indication: Diarrhoea
     Dosage: 3 GRAM
     Route: 048
     Dates: start: 20210403
  8. LEVOTHYROXINE [Concomitant]
     Active Substance: LEVOTHYROXINE
     Indication: Hypothyroidism
     Dosage: 62.5 MICROGRAM
     Route: 048
     Dates: start: 20210420
  9. METOCLOPRAMIDE HYDROCHLORIDE [Concomitant]
     Active Substance: METOCLOPRAMIDE HYDROCHLORIDE
     Indication: Dizziness
     Dosage: 10 MILLIGRAM
     Route: 048
     Dates: start: 20210512
  10. ACETAMINOPHEN [Concomitant]
     Active Substance: ACETAMINOPHEN
     Indication: Dizziness
     Dosage: 1000 MILLIGRAM
     Route: 042
     Dates: start: 20210402, end: 20210402
  11. ACETAMINOPHEN [Concomitant]
     Active Substance: ACETAMINOPHEN
     Dosage: 2000 MILLIGRAM
     Route: 048
     Dates: start: 20210512, end: 20210512
  12. ACETAMINOPHEN [Concomitant]
     Active Substance: ACETAMINOPHEN
     Dosage: 1000 MILLIGRAM
     Route: 048
     Dates: start: 20210513, end: 20210515
  13. ASPIRIN DL-LYSINE [Concomitant]
     Active Substance: ASPIRIN DL-LYSINE
     Indication: Dizziness
     Dosage: 75 MILLIGRAM
     Route: 048
     Dates: start: 20210512, end: 20210517
  14. NICARDIPINE HYDROCHLORIDE [Concomitant]
     Active Substance: NICARDIPINE HYDROCHLORIDE
     Indication: Dizziness
     Dosage: 80 MILLIGRAM
     Route: 048
     Dates: start: 20210511, end: 20210512
  15. NICARDIPINE HYDROCHLORIDE [Concomitant]
     Active Substance: NICARDIPINE HYDROCHLORIDE
     Dosage: 20 MILLIGRAM
     Route: 048
     Dates: start: 20210516
  16. ACETYLLEUCINE, L- [Concomitant]
     Active Substance: ACETYLLEUCINE, L-
     Indication: Dizziness
     Dosage: 1000 MILLIGRAM
     Route: 048
     Dates: start: 20210511
  17. NICARDIPINE HYDROCHLORIDE [Concomitant]
     Active Substance: NICARDIPINE HYDROCHLORIDE
     Indication: Dizziness
     Dosage: 20 MILLIGRAM
     Route: 048
     Dates: start: 20210517
  18. KARDEGIC [Concomitant]
     Active Substance: ASPIRIN DL-LYSINE
     Indication: Product used for unknown indication
     Dosage: 75 MILLIGRAM
     Route: 048
  19. ARTERIN [Concomitant]
     Indication: Product used for unknown indication
     Dosage: UNK
     Route: 048
  20. COVID-19 VACCINE [Concomitant]
     Indication: Prophylaxis
     Dosage: UNK
     Route: 030
     Dates: start: 20210503
  21. COVID-19 VACCINE [Concomitant]
     Dosage: UNK
     Route: 030
     Dates: start: 20210531
  22. POTASSIUM CHLORIDE [Concomitant]
     Active Substance: POTASSIUM CHLORIDE
     Indication: Hypokalaemia
     Dosage: UNK
     Route: 048
     Dates: start: 20210511

REACTIONS (2)
  - General physical condition abnormal [Recovered/Resolved]
  - Adrenal insufficiency [Recovered/Resolved]

NARRATIVE: CASE EVENT DATE: 20210526
